FAERS Safety Report 16531319 (Version 3)
Quarter: 2019Q4

REPORT INFORMATION
  Report Type: Spontaneous
  Country: US (occurrence: US)
  Receive Date: 20190705
  Receipt Date: 20191007
  Transmission Date: 20200122
  Serious: Yes (Other)
  Sender: FDA-Public Use
  Company Number: US-BAYER-2019-126479

PATIENT
  Age: 20 Year
  Sex: Female
  Weight: 67.82 kg

DRUGS (4)
  1. SKYLA [Suspect]
     Active Substance: LEVONORGESTREL
     Indication: CONTRACEPTION
     Dosage: 14 MCG/24HR, CONT
     Route: 015
     Dates: start: 20190109, end: 20190522
  2. DIFLUCAN [Concomitant]
     Active Substance: FLUCONAZOLE
     Route: 048
  3. CLOTRIMAZOLE. [Concomitant]
     Active Substance: CLOTRIMAZOLE
  4. SODIUM CHLORIDE 0.9% [Concomitant]
     Active Substance: SODIUM CHLORIDE

REACTIONS (21)
  - Vaginal discharge [None]
  - Abdominal pain lower [None]
  - Vulvovaginal candidiasis [None]
  - Breast discomfort [None]
  - Breast tenderness [None]
  - Cerumen impaction [None]
  - Pregnancy with contraceptive device [Not Recovered/Not Resolved]
  - Dysmenorrhoea [None]
  - Menorrhagia [None]
  - Abdominal pain upper [None]
  - Drug ineffective [None]
  - Fungal infection [None]
  - Device physical property issue [None]
  - Back pain [None]
  - Genital tract inflammation [None]
  - Breast pain [None]
  - Urine odour abnormal [None]
  - Vulvovaginal discomfort [None]
  - Depressed mood [None]
  - Device expulsion [None]
  - Urinary tract disorder [None]

NARRATIVE: CASE EVENT DATE: 20190520
